FAERS Safety Report 13183253 (Version 1)
Quarter: 2017Q1

REPORT INFORMATION
  Report Type: Spontaneous
  Country: CA (occurrence: CA)
  Receive Date: 20170203
  Receipt Date: 20170203
  Transmission Date: 20170428
  Serious: Yes (Life-Threatening, Other)
  Sender: FDA-Public Use
  Company Number: CA-TEVA-735373ACC

PATIENT
  Sex: Female

DRUGS (1)
  1. ACT IRBESARTAN [Suspect]
     Active Substance: IRBESARTAN
     Indication: BLOOD PRESSURE NORMAL

REACTIONS (4)
  - Panic reaction [Unknown]
  - Dizziness postural [Unknown]
  - Blood pressure increased [Unknown]
  - Presyncope [Unknown]
